FAERS Safety Report 13768039 (Version 2)
Quarter: 2017Q3

REPORT INFORMATION
  Report Type: Spontaneous
  Country: FR (occurrence: FR)
  Receive Date: 20170719
  Receipt Date: 20170726
  Transmission Date: 20171127
  Serious: Yes (Hospitalization, Other)
  Sender: FDA-Public Use
  Company Number: FR-PFIZER INC-2017312410

PATIENT
  Sex: Male

DRUGS (7)
  1. CORDARONE [Suspect]
     Active Substance: AMIODARONE HYDROCHLORIDE
     Indication: ATRIAL FIBRILLATION
     Dosage: 100 MG, 1X/DAY (0.5 DOSE FORM, 1 IN 1 DAY)
     Route: 048
     Dates: end: 201702
  2. XARELTO [Concomitant]
     Active Substance: RIVAROXABAN
     Dosage: UNK
  3. UROREC [Concomitant]
     Active Substance: SILODOSIN
     Dosage: UNK
  4. FLUVASTATIN [Concomitant]
     Active Substance: FLUVASTATIN SODIUM
     Dosage: UNK
  5. KARDEGIC [Concomitant]
     Active Substance: ASPIRIN LYSINE
     Dosage: UNK
  6. AVODART [Concomitant]
     Active Substance: DUTASTERIDE
     Dosage: UNK
  7. AMOR [Concomitant]
     Dosage: UNK

REACTIONS (4)
  - Lymphadenopathy mediastinal [Unknown]
  - Pulmonary fibrosis [Recovered/Resolved]
  - Myalgia [Unknown]
  - Interstitial lung disease [Recovered/Resolved]
